FAERS Safety Report 4359026-9 (Version None)
Quarter: 2004Q2

REPORT INFORMATION
  Report Type: 
  Country: None (occurrence: None)
  Receive Date: 20040517
  Receipt Date: 20040513
  Transmission Date: 20050107
  Serious: Yes (Other)
  Sender: FDA-Public Use
  Company Number: US-GLAXOSMITHKLINE-A0510741A

PATIENT
  Sex: Male

DRUGS (3)
  1. COREG [Suspect]
     Dosage: 6.125MG TWICE PER DAY
     Route: 048
  2. DIGOXIN [Concomitant]
  3. ALTACE [Concomitant]

REACTIONS (2)
  - ATRIAL FIBRILLATION [None]
  - BRADYCARDIA [None]
